FAERS Safety Report 14650013 (Version 2)
Quarter: 2018Q1

REPORT INFORMATION
  Report Type: Spontaneous
  Country: CA (occurrence: CA)
  Receive Date: 20180316
  Receipt Date: 20180328
  Transmission Date: 20180509
  Serious: Yes (Hospitalization)
  Sender: FDA-Public Use
  Company Number: CA-BAYER-2018-051667

PATIENT
  Age: 52 Year
  Sex: Male

DRUGS (2)
  1. PROPYLENE GLYCOL [Suspect]
     Active Substance: PROPYLENE GLYCOL
  2. MACROGOL 3350 [Suspect]
     Active Substance: POLYETHYLENE GLYCOL 3350
     Indication: COLONOSCOPY

REACTIONS (4)
  - Metabolic acidosis [Recovered/Resolved]
  - Wrong drug administered [None]
  - Drug dispensing error [None]
  - Product name confusion [None]
